FAERS Safety Report 9078275 (Version 1)
Quarter: 2013Q1

REPORT INFORMATION
  Report Type: Report from Study
  Country: US (occurrence: US)
  Receive Date: 20130130
  Receipt Date: 20130130
  Transmission Date: 20140127
  Serious: No
  Sender: FDA-Public Use
  Company Number: US-ABBOTT-12P-163-0977421-00

PATIENT
  Sex: Female

DRUGS (1)
  1. HUMIRA PRE-FILLED SYRINGE [Suspect]
     Indication: PSORIASIS
     Dates: start: 20120718

REACTIONS (2)
  - Ear pain [Not Recovered/Not Resolved]
  - Exposure to toxic agent [Unknown]
